FAERS Safety Report 12666814 (Version 1)
Quarter: 2016Q3

REPORT INFORMATION
  Report Type: Spontaneous
  Country: US (occurrence: None)
  Receive Date: 20160818
  Receipt Date: 20160818
  Transmission Date: 20161109
  Serious: No
  Sender: FDA-Public Use
  Company Number: None

PATIENT
  Age: 38 Year
  Sex: Male

DRUGS (1)
  1. TRIUMEQ [Suspect]
     Active Substance: ABACAVIR SULFATE\DOLUTEGRAVIR SODIUM\LAMIVUDINE
     Indication: HIV INFECTION
     Route: 048
     Dates: start: 20150901

REACTIONS (6)
  - Rift Valley fever [None]
  - Computerised tomogram abnormal [None]
  - Lung neoplasm malignant [None]
  - Sneezing [None]
  - Cough [None]
  - Bronchitis [None]

NARRATIVE: CASE EVENT DATE: 20160101
